FAERS Safety Report 7979039-5 (Version None)
Quarter: 2011Q4

REPORT INFORMATION
  Report Type: 
  Country: None (occurrence: None)
  Receive Date: 20111214
  Receipt Date: 20111209
  Transmission Date: 20120403
  Serious: Yes (Hospitalization)
  Sender: FDA-Public Use
  Company Number: US-PFIZER INC-2011301216

PATIENT
  Age: 81 Year
  Sex: Male
  Weight: 79.8 kg

DRUGS (3)
  1. DETROL [Suspect]
     Indication: HYPERTONIC BLADDER
     Dosage: 30 MG, DAILY
     Route: 048
     Dates: start: 20110101, end: 20110128
  2. FOSAMAX [Concomitant]
     Indication: BONE DISORDER
     Dosage: UNK
  3. FLOVENT [Concomitant]
     Indication: DYSPNOEA
     Dosage: UNK

REACTIONS (1)
  - HEART RATE INCREASED [None]
